FAERS Safety Report 12613591 (Version 1)
Quarter: 2016Q3

REPORT INFORMATION
  Report Type: Spontaneous
  Country: US (occurrence: None)
  Receive Date: 20160801
  Receipt Date: 20160801
  Transmission Date: 20161109
  Serious: Yes (Disabling)
  Sender: FDA-Public Use
  Company Number: None

PATIENT
  Age: 56 Year
  Sex: Female
  Weight: 64.86 kg

DRUGS (20)
  1. GABAPENTIN. [Concomitant]
     Active Substance: GABAPENTIN
  2. EVOXAC [Concomitant]
     Active Substance: CEVIMELINE HYDROCHLORIDE
  3. VALTREX [Concomitant]
     Active Substance: VALACYCLOVIR HYDROCHLORIDE
  4. MIRTAZIPINE [Concomitant]
     Active Substance: MIRTAZAPINE
  5. CELEBREX [Concomitant]
     Active Substance: CELECOXIB
  6. OXYCODONE WITH ACETAMINOPHEN [Concomitant]
  7. VITAMIN B (MULTI) [Concomitant]
  8. BIOTIN [Concomitant]
     Active Substance: BIOTIN
  9. LEVOFLOXACIN. [Suspect]
     Active Substance: LEVOFLOXACIN
     Indication: URINARY TRACT INFECTION
     Dosage: 7 CAPSULE(S) ONCE A DAY TAKEN BY MOUTH
     Route: 048
     Dates: start: 20160706, end: 20160712
  10. CLONAZAPINE, USP ODT (CLOZAPINE, USP) OCT) (ORAL DISINTEGRATING TABLET) [Concomitant]
     Active Substance: CLOZAPINE
  11. ORPHENADRINE [Concomitant]
     Active Substance: ORPHENADRINE
  12. MAGNESIUM [Concomitant]
     Active Substance: MAGNESIUM
  13. SIMVASTATIN. [Concomitant]
     Active Substance: SIMVASTATIN
  14. BUPROPION. [Concomitant]
     Active Substance: BUPROPION
  15. SYNTHROID [Concomitant]
     Active Substance: LEVOTHYROXINE SODIUM
  16. FLORCET [Concomitant]
  17. MULTIVITAMIN [Concomitant]
     Active Substance: VITAMINS
  18. DIFLUCAN [Concomitant]
     Active Substance: FLUCONAZOLE
  19. PLAQUENIL [Concomitant]
     Active Substance: HYDROXYCHLOROQUINE SULFATE
  20. VITAMIN D [Concomitant]
     Active Substance: CHOLECALCIFEROL

REACTIONS (5)
  - Pain [None]
  - Arthralgia [None]
  - Musculoskeletal stiffness [None]
  - Tendon pain [None]
  - Gait disturbance [None]

NARRATIVE: CASE EVENT DATE: 20160710
